FAERS Safety Report 6252439-X (Version None)
Quarter: 2009Q3

REPORT INFORMATION
  Report Type: 
  Country: None (occurrence: None)
  Receive Date: 20090701
  Receipt Date: 20090627
  Transmission Date: 20100115
  Serious: Yes (Life-Threatening, Hospitalization)
  Sender: FDA-Public Use
  Company Number: US-WYE-H09927209

PATIENT
  Age: 51 Year
  Sex: Female
  Weight: 98.8 kg

DRUGS (3)
  1. MYLOTARG [Suspect]
     Indication: ACUTE MYELOID LEUKAEMIA
     Dosage: 12 MG TOTAL DOSE ADMINISTERED
     Route: 042
     Dates: start: 20090521, end: 20090616
  2. ARA-C [Suspect]
     Indication: ACUTE MYELOID LEUKAEMIA
     Dosage: 198 MG TOTAL DOSE ADMINISTERED
     Route: 042
     Dates: start: 20090521, end: 20090619
  3. DAUNOMYCIN [Suspect]
     Indication: ACUTE MYELOID LEUKAEMIA
     Dosage: 90 MG TOTAL DOSE ADMINISTERED
     Route: 042
     Dates: start: 20090521

REACTIONS (2)
  - BACTERAEMIA [None]
  - ENTEROCOCCAL INFECTION [None]
